FAERS Safety Report 4757757-X (Version None)
Quarter: 2005Q3

REPORT INFORMATION
  Report Type: 
  Country: None (occurrence: None)
  Receive Date: 20050830
  Receipt Date: 20050822
  Transmission Date: 20060218
  Serious: Yes (Other)
  Sender: FDA-Public Use
  Company Number: 2005119532

PATIENT
  Age: 39 Year
  Sex: Female

DRUGS (1)
  1. SULFASALAZINE [Suspect]
     Indication: ILL-DEFINED DISORDER
     Dosage: 3000 MG (500 MG, 3 IN 1 D), ORAL
     Route: 048

REACTIONS (1)
  - VENTRICULAR HYPERTROPHY [None]
